FAERS Safety Report 8465104-5 (Version None)
Quarter: 2012Q2

REPORT INFORMATION
  Report Type: 
  Country: None (occurrence: None)
  Receive Date: 20120626
  Receipt Date: 20120618
  Transmission Date: 20120825
  Serious: Yes (Hospitalization)
  Sender: FDA-Public Use
  Company Number: US-BAYER-2012-061102

PATIENT
  Age: 30 Year
  Sex: Female
  Weight: 115 kg

DRUGS (10)
  1. CHLORTHALIDONE [Concomitant]
     Dosage: 25 MG, QD(DAILY)
  2. ULTRAM [Concomitant]
     Dosage: 50 MG, UNK
  3. NYQUIL [Concomitant]
  4. ZYRTEC [Concomitant]
     Dosage: UNK UNK, PRN(AS NEEDED)
  5. TORADOL [Concomitant]
     Dosage: 30 MG, UNK
     Route: 042
  6. YAZ [Suspect]
     Dosage: UNK UNK, QD (2 TABLETS DAILY)
     Route: 048
  7. DROSPIRENONE AND ETHINYL ESTRADIOL [Suspect]
  8. YAZ [Suspect]
  9. TRAZODONE HCL [Concomitant]
     Dosage: 150 MG, HS
  10. LEVAQUIN [Concomitant]
     Indication: PNEUMONIA
     Dosage: 500 MG, UNK

REACTIONS (2)
  - PULMONARY EMBOLISM [None]
  - DEEP VEIN THROMBOSIS [None]
